FAERS Safety Report 20429561 (Version 1)
Quarter: 2022Q1

REPORT INFORMATION
  Report Type: Report from Study
  Country: FR (occurrence: FR)
  Receive Date: 20220204
  Receipt Date: 20220204
  Transmission Date: 20220423
  Serious: Yes (Hospitalization, Other)
  Sender: FDA-Public Use
  Company Number: FR-SERVIER-S19011525

PATIENT

DRUGS (7)
  1. PEGASPARGASE [Suspect]
     Active Substance: PEGASPARGASE
     Indication: Acute lymphocytic leukaemia
     Dosage: 1550 IU, QD ON D8
     Route: 042
     Dates: start: 20191014, end: 20191014
  2. DEXAMETHASONE [Suspect]
     Active Substance: DEXAMETHASONE
     Indication: Acute lymphocytic leukaemia
     Dosage: 5.5 MG, D1, D8, D29, D36, D57, D64
     Route: 048
     Dates: start: 20190812, end: 20190816
  3. DEXAMETHASONE [Suspect]
     Active Substance: DEXAMETHASONE
     Dosage: 3.6 MG, D1 TO D5, D29 TO D33, D55 TO D61
     Route: 048
     Dates: start: 20191007
  4. MERCAPTOPURINE [Suspect]
     Active Substance: MERCAPTOPURINE
     Indication: Acute lymphocytic leukaemia
     Dosage: 31 MG, D1 TO D21, D29 TO D49, D57 TO D77
     Route: 037
     Dates: start: 20191007, end: 20190705
  5. METHOTREXATE [Suspect]
     Active Substance: METHOTREXATE
     Indication: Acute lymphocytic leukaemia
     Dosage: 10 MG, D2, D30, D58
     Route: 037
     Dates: start: 20191008
  6. METHOTREXATE [Suspect]
     Active Substance: METHOTREXATE
     Dosage: 16 MG, D8, D15, D22, D36, D43, D50, D64
     Route: 048
     Dates: start: 20191014
  7. VINCRISTINE [Suspect]
     Active Substance: VINCRISTINE
     Indication: Acute lymphocytic leukaemia
     Dosage: 0.9 MG, ON D15
     Route: 042
     Dates: start: 20191007

REACTIONS (2)
  - Drug hypersensitivity [Recovered/Resolved]
  - Osteoarthritis [Recovered/Resolved]

NARRATIVE: CASE EVENT DATE: 20191014
